FAERS Safety Report 4717265-9 (Version None)
Quarter: 2005Q3

REPORT INFORMATION
  Report Type: 
  Country: None (occurrence: None)
  Receive Date: 20050715
  Receipt Date: 20050630
  Transmission Date: 20060218
  Serious: Yes (Other)
  Sender: FDA-Public Use
  Company Number: 2005PL000054

PATIENT
  Age: 13 Year
  Sex: Male

DRUGS (3)
  1. AZATHIOPRINE [Suspect]
     Indication: WEGENER'S GRANULOMATOSIS
  2. PREDNISOLONE [Concomitant]
  3. CYCLOPHOSPHAMIDE [Concomitant]

REACTIONS (6)
  - ANXIETY [None]
  - OBSESSIVE-COMPULSIVE DISORDER [None]
  - PANIC ATTACK [None]
  - SLEEP DISORDER [None]
  - SUICIDE ATTEMPT [None]
  - VASCULITIS [None]
